FAERS Safety Report 5061981-9 (Version None)
Quarter: 2006Q3

REPORT INFORMATION
  Report Type: 
  Country: None (occurrence: None)
  Receive Date: 20060703
  Receipt Date: 20051020
  Transmission Date: 20061208
  Serious: Yes (Life-Threatening)
  Sender: FDA-Public Use
  Company Number: 2005S1010484

PATIENT
  Age: 59 Year
  Sex: Female

DRUGS (4)
  1. CLOZAPINE [Suspect]
     Dosage: 100 MG; BID; PO
     Route: 048
     Dates: start: 20051007, end: 20051024
  2. LISINOPRIL [Concomitant]
  3. METFORMIN [Concomitant]
  4. RISPERIDONE [Concomitant]

REACTIONS (3)
  - AGRANULOCYTOSIS [None]
  - GRANULOCYTOPENIA [None]
  - LEUKOPENIA [None]
